FAERS Safety Report 21829714 (Version 4)
Quarter: 2023Q1

REPORT INFORMATION
  Report Type: Report from Study
  Country: US (occurrence: US)
  Receive Date: 20230106
  Receipt Date: 20230324
  Transmission Date: 20230417
  Serious: No
  Sender: FDA-Public Use
  Company Number: US-002147023-NVSC2023US002901

PATIENT
  Age: 52 Year
  Sex: Female

DRUGS (1)
  1. COSENTYX [Suspect]
     Active Substance: SECUKINUMAB
     Indication: Psoriatic arthropathy
     Dosage: 150 MG, QW (QW FOR FOUR WEEKS AND THEN QMO)
     Route: 058
     Dates: start: 20230104

REACTIONS (5)
  - Dry mouth [Unknown]
  - Arthralgia [Unknown]
  - Glossodynia [Unknown]
  - Joint swelling [Unknown]
  - Therapeutic product effect decreased [Unknown]

NARRATIVE: CASE EVENT DATE: 20230105
